FAERS Safety Report 19772133 (Version 2)
Quarter: 2021Q3

REPORT INFORMATION
  Report Type: Spontaneous
  Country: US (occurrence: US)
  Receive Date: 20210831
  Receipt Date: 20210831
  Transmission Date: 20211014
  Serious: No
  Sender: FDA-Public Use
  Company Number: US-ASTRAZENECA-2021A676452

PATIENT
  Age: 23919 Day
  Sex: Female
  Weight: 120.2 kg

DRUGS (8)
  1. SYMBICORT [Suspect]
     Active Substance: BUDESONIDE\FORMOTEROL FUMARATE DIHYDRATE
     Indication: CHRONIC OBSTRUCTIVE PULMONARY DISEASE
     Dosage: 80/4.5 MCG, TWO PUFFS TWICE EACH DAY
     Route: 055
     Dates: start: 20210805, end: 20210807
  2. ATROPINE/DIPHENOXYLATE [Concomitant]
     Active Substance: ATROPINE\DIPHENOXYLATE
     Indication: DIARRHOEA
  3. LASIX [Concomitant]
     Active Substance: FUROSEMIDE
     Indication: JOINT SWELLING
  4. TRULICITY [Concomitant]
     Active Substance: DULAGLUTIDE
     Indication: DIABETES MELLITUS
     Dosage: 1.5/0.5 ML. SUB?Q WEEKLY
     Route: 058
     Dates: start: 20180408
  5. LASIX [Concomitant]
     Active Substance: FUROSEMIDE
     Indication: FLUID RETENTION
  6. SYMBICORT [Suspect]
     Active Substance: BUDESONIDE\FORMOTEROL FUMARATE DIHYDRATE
     Indication: ASTHMA
     Dosage: 80/4.5 MCG, TWO PUFFS TWICE EACH DAY
     Route: 055
     Dates: start: 20210805, end: 20210807
  7. TRESIBA [Concomitant]
     Active Substance: INSULIN DEGLUDEC
     Indication: DIABETES MELLITUS
     Dosage: 108 UNITS IN AM AND 120 UNITS AT NIGHT SUB?Q SINCE 8 OR 9 YEARS AGO
     Route: 058
  8. NOVOLOG [Concomitant]
     Active Substance: INSULIN ASPART
     Indication: DIABETES MELLITUS
     Dosage: 14 TO 16 UNITS BEFORE BREAKFAST, 30 TO 36 UNITS BEFORE LUNCH, 30 TO 40 UNITS BEFORE DINNER AND 10...
     Route: 058

REACTIONS (12)
  - Fluid retention [Recovering/Resolving]
  - Retching [Recovered/Resolved]
  - Diarrhoea [Recovered/Resolved]
  - Joint swelling [Recovering/Resolving]
  - Dysphonia [Recovering/Resolving]
  - Sneezing [Recovered/Resolved]
  - Productive cough [Unknown]
  - Nausea [Recovered/Resolved]
  - Feeling abnormal [Unknown]
  - Laryngitis [Recovering/Resolving]
  - Cough [Recovered/Resolved]
  - Drug ineffective [Unknown]

NARRATIVE: CASE EVENT DATE: 20210706
